FAERS Safety Report 10970681 (Version 2)
Quarter: 2015Q2

REPORT INFORMATION
  Report Type: Spontaneous
  Country: JP (occurrence: JP)
  Receive Date: 20150331
  Receipt Date: 20150617
  Transmission Date: 20150821
  Serious: Yes (Other)
  Sender: FDA-Public Use
  Company Number: JP-009507513-1503JPN014769

PATIENT
  Age: 58 Year

DRUGS (1)
  1. GLACTIV [Suspect]
     Active Substance: SITAGLIPTIN
     Indication: TYPE 2 DIABETES MELLITUS
     Dosage: 50 MG, ONCE A DAY, STRENGTH REPORTED AS 12.5 MG, 25MG, 50MG AND 100MG
     Route: 048
     Dates: start: 201404

REACTIONS (5)
  - Myoglobin blood increased [Unknown]
  - Protein urine [Unknown]
  - Blood creatine phosphokinase increased [Unknown]
  - Weight increased [Unknown]
  - Aspartate aminotransferase increased [Unknown]
